FAERS Safety Report 7497584-6 (Version None)
Quarter: 2011Q2

REPORT INFORMATION
  Report Type: 
  Country: None (occurrence: None)
  Receive Date: 20110523
  Receipt Date: 20110518
  Transmission Date: 20111010
  Serious: Yes (Other)
  Sender: FDA-Public Use
  Company Number: CA-ABBOTT-11P-028-0718444-00

PATIENT
  Sex: Female
  Weight: 79.904 kg

DRUGS (1)
  1. HUMIRA [Suspect]
     Indication: PSORIASIS
     Route: 058
     Dates: start: 20100701, end: 20110401

REACTIONS (4)
  - MYOCARDIAL INFARCTION [None]
  - PSORIASIS [None]
  - PAIN [None]
  - ONYCHOMYCOSIS [None]
